FAERS Safety Report 24125807 (Version 1)
Quarter: 2024Q3

REPORT INFORMATION
  Report Type: Spontaneous
  Country: US (occurrence: US)
  Receive Date: 20240723
  Receipt Date: 20240723
  Transmission Date: 20241017
  Serious: No
  Sender: STEMLINE THERAPEUTICS
  Company Number: US-Stemline Therapeutics, Inc.-2024ST003246

PATIENT
  Age: 66 Year
  Sex: Female

DRUGS (11)
  1. ORSERDU [Suspect]
     Active Substance: ELACESTRANT
     Indication: Product used for unknown indication
     Dosage: 345 MG
     Route: 048
     Dates: start: 202401
  2. CHLORHEXIDINE GLUCONATE [Concomitant]
     Active Substance: CHLORHEXIDINE GLUCONATE
     Indication: Product used for unknown indication
  3. VITAMIN D [Concomitant]
     Active Substance: VITAMIN D NOS
     Indication: Product used for unknown indication
  4. CALCIUM [Concomitant]
     Active Substance: CALCIUM
     Indication: Product used for unknown indication
  5. VITAMIN D3 [Concomitant]
     Active Substance: CHOLECALCIFEROL
     Indication: Product used for unknown indication
  6. IBUPROFEN [Concomitant]
     Active Substance: IBUPROFEN
     Indication: Product used for unknown indication
  7. VITAMINS [Concomitant]
     Active Substance: VITAMINS
     Indication: Product used for unknown indication
  8. PREVIDENT [Concomitant]
     Active Substance: SODIUM FLUORIDE
     Indication: Product used for unknown indication
  9. VITAMIN B12 [Concomitant]
     Active Substance: CYANOCOBALAMIN
     Indication: Product used for unknown indication
  10. MATCHA [Concomitant]
     Indication: Product used for unknown indication
  11. DANDELION [Concomitant]
     Active Substance: TARAXACUM OFFICINALE POLLEN
     Indication: Product used for unknown indication

REACTIONS (1)
  - Full blood count abnormal [Unknown]
